FAERS Safety Report 17699396 (Version 1)
Quarter: 2020Q2

REPORT INFORMATION
  Report Type: Spontaneous
  Country: FR (occurrence: FR)
  Receive Date: 20200423
  Receipt Date: 20200423
  Transmission Date: 20200714
  Serious: Yes (Hospitalization)
  Sender: FDA-Public Use
  Company Number: FR-ASTRAZENECA-2020SE53632

PATIENT
  Age: 98 Year
  Sex: Female

DRUGS (1)
  1. XEROQUEL [Suspect]
     Active Substance: QUETIAPINE FUMARATE
     Indication: WRONG PATIENT RECEIVED PRODUCT
     Dosage: 300.0MG UNKNOWN
     Route: 048
     Dates: start: 20200306

REACTIONS (4)
  - Dehydration [Recovering/Resolving]
  - Somnolence [Recovering/Resolving]
  - Product administration error [Recovering/Resolving]
  - Pneumonia aspiration [Recovering/Resolving]

NARRATIVE: CASE EVENT DATE: 20200306
